FAERS Safety Report 6344274-9 (Version None)
Quarter: 2009Q3

REPORT INFORMATION
  Report Type: 
  Country: None (occurrence: None)
  Receive Date: 20090908
  Receipt Date: 20090824
  Transmission Date: 20100115
  Serious: Yes (Other)
  Sender: FDA-Public Use
  Company Number: JP-PFIZER INC-2009258890

PATIENT
  Age: 29 Year

DRUGS (1)
  1. DOXAZOSIN MESILATE [Suspect]
     Indication: HYPERTENSION
     Dosage: 3 MG, 1X/DAY

REACTIONS (1)
  - RETROGRADE EJACULATION [None]
